FAERS Safety Report 10015476 (Version 1)
Quarter: 2014Q1

REPORT INFORMATION
  Report Type: Spontaneous
  Country: US (occurrence: US)
  Receive Date: 20140317
  Receipt Date: 20140317
  Transmission Date: 20141002
  Serious: Yes (Other)
  Sender: FDA-Public Use
  Company Number: US-BMSGILMSD-2014-0096763

PATIENT
  Sex: Female
  Weight: 78.46 kg

DRUGS (1)
  1. ATRIPLA [Suspect]
     Indication: HIV INFECTION
     Dosage: 1 DF, UNK
     Route: 048

REACTIONS (3)
  - Dementia [Unknown]
  - Foreign body [Unknown]
  - Visual impairment [Unknown]
